FAERS Safety Report 13992341 (Version 1)
Quarter: 2017Q3

REPORT INFORMATION
  Report Type: Spontaneous
  Country: US (occurrence: US)
  Receive Date: 20170920
  Receipt Date: 20170920
  Transmission Date: 20171128
  Serious: No
  Sender: FDA-Public Use
  Company Number: US-JNJFOC-20170805596

PATIENT
  Age: 81 Year
  Sex: Male

DRUGS (1)
  1. NIZORAL A-D [Suspect]
     Active Substance: KETOCONAZOLE
     Indication: PRURITUS GENITAL
     Route: 061
     Dates: start: 20170804

REACTIONS (2)
  - Genital burning sensation [Unknown]
  - Incorrect route of drug administration [Unknown]
